FAERS Safety Report 7637173-3 (Version None)
Quarter: 2011Q3

REPORT INFORMATION
  Report Type: 
  Country: None (occurrence: None)
  Receive Date: 20110726
  Receipt Date: 20110712
  Transmission Date: 20111222
  Serious: Yes (Other)
  Sender: FDA-Public Use
  Company Number: PHHY2011US11406

PATIENT
  Sex: Female
  Weight: 64.86 kg

DRUGS (1)
  1. EXJADE [Suspect]
     Indication: IRON METABOLISM DISORDER
     Dosage: 500 MG, TID
     Route: 048
     Dates: start: 20080708

REACTIONS (2)
  - RASH PRURITIC [None]
  - COLITIS ISCHAEMIC [None]
